FAERS Safety Report 12578766 (Version 1)
Quarter: 2016Q3

REPORT INFORMATION
  Report Type: Spontaneous
  Country: US (occurrence: None)
  Receive Date: 20160720
  Receipt Date: 20160720
  Transmission Date: 20161109
  Serious: No
  Sender: FDA-Public Use
  Company Number: None

PATIENT
  Age: 56 Year
  Sex: Female

DRUGS (1)
  1. NIFEDICAL XL [Suspect]
     Active Substance: NIFEDIPINE
     Indication: RENAL TRANSPLANT
     Route: 048
     Dates: start: 20160718

REACTIONS (1)
  - Headache [None]

NARRATIVE: CASE EVENT DATE: 20160718
